FAERS Safety Report 8159018-8 (Version None)
Quarter: 2012Q1

REPORT INFORMATION
  Report Type: 
  Country: None (occurrence: None)
  Receive Date: 20120223
  Receipt Date: 20120202
  Transmission Date: 20120608
  Serious: No
  Sender: FDA-Public Use
  Company Number: US-BAYER-2012-011262

PATIENT
  Sex: Male

DRUGS (3)
  1. ACETAMINOPHEN [Concomitant]
  2. NEURONTIN [Concomitant]
  3. BETASERON [Suspect]
     Dosage: UNK

REACTIONS (2)
  - SKIN IRRITATION [None]
  - DRY SKIN [None]
